FAERS Safety Report 4689868-1 (Version None)
Quarter: 2005Q2

REPORT INFORMATION
  Report Type: 
  Country: None (occurrence: None)
  Receive Date: 20050614
  Receipt Date: 20050530
  Transmission Date: 20051028
  Serious: Yes (Other)
  Sender: FDA-Public Use
  Company Number: IT-JNJFOC-20050600349

PATIENT
  Sex: Female

DRUGS (2)
  1. REMINYL [Suspect]
     Indication: SENILE DEMENTIA
     Route: 049
     Dates: start: 20050418, end: 20050420
  2. TOTALIP [Concomitant]
     Route: 065

REACTIONS (7)
  - AGITATION [None]
  - HALLUCINATION [None]
  - HEADACHE [None]
  - LIVER DISORDER [None]
  - NAUSEA [None]
  - VERTIGO [None]
  - VOMITING [None]
